FAERS Safety Report 22671783 (Version 12)
Quarter: 2025Q2

REPORT INFORMATION
  Report Type: Report from Study
  Country: US (occurrence: US)
  Receive Date: 20230705
  Receipt Date: 20250624
  Transmission Date: 20250716
  Serious: Yes (Hospitalization, Other)
  Sender: JAZZ
  Company Number: US-JAZZ PHARMACEUTICALS-2023-US-014085

PATIENT
  Sex: Female

DRUGS (6)
  1. XYWAV [Suspect]
     Active Substance: CALCIUM OXYBATE\MAGNESIUM OXYBATE\POTASSIUM OXYBATE\SODIUM OXYBATE
     Indication: Narcolepsy
     Dosage: 3 GRAM, BID
  2. XYWAV [Suspect]
     Active Substance: CALCIUM OXYBATE\MAGNESIUM OXYBATE\POTASSIUM OXYBATE\SODIUM OXYBATE
     Indication: Cataplexy
  3. XYWAV [Suspect]
     Active Substance: CALCIUM OXYBATE\MAGNESIUM OXYBATE\POTASSIUM OXYBATE\SODIUM OXYBATE
     Indication: Somnolence
  4. XYWAV [Suspect]
     Active Substance: CALCIUM OXYBATE\MAGNESIUM OXYBATE\POTASSIUM OXYBATE\SODIUM OXYBATE
     Dosage: 4.5 GRAM, BID
  5. ADDERALL [Concomitant]
     Active Substance: AMPHETAMINE ASPARTATE\AMPHETAMINE SULFATE\DEXTROAMPHETAMINE SACCHARATE\DEXTROAMPHETAMINE SULFATE
     Indication: Product used for unknown indication
     Dates: start: 20240617
  6. VITAMIN B12 [Concomitant]
     Active Substance: CYANOCOBALAMIN
     Indication: Product used for unknown indication
     Dates: start: 20241203

REACTIONS (22)
  - Arrhythmia [Unknown]
  - Blood pressure increased [Recovered/Resolved]
  - Pneumonia [Recovered/Resolved]
  - Bronchitis [Recovering/Resolving]
  - Anaemia [Unknown]
  - Emotional disorder [Unknown]
  - Sleep terror [Unknown]
  - Fall [Unknown]
  - Head injury [Unknown]
  - Feeling abnormal [Unknown]
  - Face injury [Unknown]
  - Limb discomfort [Unknown]
  - COVID-19 [Recovering/Resolving]
  - Vitamin D decreased [Unknown]
  - Vitamin B12 decreased [Unknown]
  - Tooth extraction [Unknown]
  - Abscess [Unknown]
  - Asthma [Unknown]
  - Product administration interrupted [Unknown]
  - Product dose omission issue [Unknown]
  - Intentional dose omission [Unknown]
  - Intentional product use issue [Unknown]
